FAERS Safety Report 15113655 (Version 4)
Quarter: 2021Q1

REPORT INFORMATION
  Report Type: Other
  Country: US (occurrence: US)
  Receive Date: 20180706
  Receipt Date: 20210201
  Transmission Date: 20210419
  Serious: Yes (Other)
  Sender: FDA-Public Use
  Company Number: US-ROCHE-2148835

PATIENT
  Age: 37 Year
  Sex: Female
  Weight: 90.35 kg

DRUGS (6)
  1. OCREVUS [Suspect]
     Active Substance: OCRELIZUMAB
     Indication: RELAPSING-REMITTING MULTIPLE SCLEROSIS
     Dosage: DATE OF TREATMENT? 16?/JUL/2020, 23/JAN/2020, 23/JUL/2019, 06/JUL/2019, 10/SEP/2019, 23/APR/2019, 11
     Route: 042
     Dates: start: 20170902
  2. OCREVUS [Suspect]
     Active Substance: OCRELIZUMAB
     Dosage: FIRST FULL DOSE
     Route: 042
     Dates: start: 20180611
  3. OCREVUS [Suspect]
     Active Substance: OCRELIZUMAB
     Route: 042
     Dates: start: 201806
  4. IBUPROFEN. [Concomitant]
     Active Substance: IBUPROFEN
  5. NALTREXONE [Concomitant]
     Active Substance: NALTREXONE
     Dosage: ONGOING:YES;LOW DOSE
  6. MACROBID [Concomitant]
     Active Substance: NITROFURANTOIN\NITROFURANTOIN MONOHYDRATE

REACTIONS (18)
  - Dandruff [Unknown]
  - Trichorrhexis [Unknown]
  - Scab [Not Recovered/Not Resolved]
  - Psoriasis [Not Recovered/Not Resolved]
  - Hypoaesthesia [Unknown]
  - Tachycardia [Recovered/Resolved]
  - Skin ulcer [Unknown]
  - Hair injury [Not Recovered/Not Resolved]
  - Heart rate increased [Not Recovered/Not Resolved]
  - Alopecia [Not Recovered/Not Resolved]
  - Cyst [Unknown]
  - Hypoaesthesia oral [Unknown]
  - Intentional product misuse [Unknown]
  - Bone pain [Recovered/Resolved]
  - Dyspepsia [Unknown]
  - Urinary tract infection [Not Recovered/Not Resolved]
  - Off label use [Unknown]
  - Hair texture abnormal [Unknown]

NARRATIVE: CASE EVENT DATE: 20180611
